FAERS Safety Report 5263754-0 (Version None)
Quarter: 2007Q1

REPORT INFORMATION
  Report Type: 
  Country: None (occurrence: None)
  Receive Date: 20061213
  Receipt Date: 20060510
  Transmission Date: 20070707
  Serious: Yes (Other)
  Sender: FDA-Public Use
  Company Number: 2006UW09230

PATIENT
  Age: 50 Year
  Sex: Female
  Weight: 58.059 kg

DRUGS (14)
  1. IRESSA [Suspect]
     Indication: BREAST CANCER
     Dates: start: 20030508
  2. XELODA [Concomitant]
  3. THALIDOMIDE [Concomitant]
  4. GEMZAR [Concomitant]
  5. PREVACID [Concomitant]
  6. NEXIUM [Concomitant]
  7. RANITIDINE [Concomitant]
  8. CELEBREX [Concomitant]
  9. WARFARIN SODIUM [Concomitant]
  10. PRINZIDE [Concomitant]
  11. VFEND [Concomitant]
  12. LEVAQUIN [Concomitant]
  13. ACYCLOVIR [Concomitant]
  14. VITAMINS [Concomitant]

REACTIONS (2)
  - HAEMORRHAGE [None]
  - LOCALISED INFECTION [None]
